FAERS Safety Report 5975443-5 (Version None)
Quarter: 2008Q4

REPORT INFORMATION
  Report Type: 
  Country: None (occurrence: None)
  Receive Date: 20081202
  Receipt Date: 20071217
  Transmission Date: 20090506
  Serious: Yes (Other)
  Sender: FDA-Public Use
  Company Number: US-AMGEN-QUU257283

PATIENT
  Sex: Female

DRUGS (2)
  1. ENBREL [Suspect]
     Indication: RHEUMATOID ARTHRITIS
     Route: 058
     Dates: start: 20061108, end: 20071126
  2. METHOTREXATE [Concomitant]
     Route: 065
     Dates: start: 20020101

REACTIONS (1)
  - DIFFUSE LARGE B-CELL LYMPHOMA [None]
